FAERS Safety Report 13238821 (Version 1)
Quarter: 2017Q1

REPORT INFORMATION
  Report Type: Spontaneous
  Country: US (occurrence: US)
  Receive Date: 20170215
  Receipt Date: 20170215
  Transmission Date: 20170428
  Serious: Yes (Other)
  Sender: FDA-Public Use
  Company Number: None

PATIENT
  Age: 57 Year
  Sex: Female
  Weight: 60.33 kg

DRUGS (2)
  1. QUETIAPINE 300 MG ROXANE [Suspect]
     Active Substance: QUETIAPINE
     Indication: POST-TRAUMATIC STRESS DISORDER
     Dosage: 300MG 1 AT HS P.O.
     Route: 048
     Dates: start: 20150106, end: 20150113
  2. QUETIAPINE 300 MG ROXANE [Suspect]
     Active Substance: QUETIAPINE
     Indication: BIPOLAR I DISORDER
     Dosage: 300MG 1 AT HS P.O.
     Route: 048
     Dates: start: 20150106, end: 20150113

REACTIONS (2)
  - Hallucination [None]
  - Nightmare [None]

NARRATIVE: CASE EVENT DATE: 20150113
